FAERS Safety Report 7209844-4 (Version None)
Quarter: 2011Q1

REPORT INFORMATION
  Report Type: 
  Country: None (occurrence: None)
  Receive Date: 20110104
  Receipt Date: 20101227
  Transmission Date: 20110831
  Serious: Yes (Death)
  Sender: FDA-Public Use
  Company Number: US-CELGENEUS-163-21880-10123234

PATIENT
  Sex: Male

DRUGS (8)
  1. PRILOSEC [Concomitant]
     Route: 048
  2. CALCIUM [Concomitant]
     Dosage: 600
     Route: 048
  3. DEXAMETHASONE [Concomitant]
     Route: 048
  4. VITAMIN B-12 [Concomitant]
     Dosage: 1000
     Route: 048
  5. REVLIMID [Suspect]
     Indication: MULTIPLE MYELOMA
     Route: 048
     Dates: start: 20100701
  6. ASPIRIN [Concomitant]
     Route: 048
  7. ZOMETA [Concomitant]
     Dosage: 4MG/5ML
     Route: 050
  8. VITAMIN D3 [Concomitant]
     Route: 048

REACTIONS (1)
  - DEATH [None]
